FAERS Safety Report 10072009 (Version 1)
Quarter: 2014Q1

REPORT INFORMATION
  Report Type: Spontaneous
  Country: GB (occurrence: None)
  Receive Date: 20140314
  Receipt Date: 20140314
  Transmission Date: 20141002
  Serious: Yes (Hospitalization)
  Sender: FDA-Public Use
  Company Number: 2013MPI00755

PATIENT
  Age: 20 Year
  Sex: Female
  Weight: 107 kg

DRUGS (4)
  1. BRENTUXIMAB VEDOTIN [Suspect]
     Indication: HODGKIN^S DISEASE
     Dosage: QCYCLE
     Route: 042
     Dates: start: 20131017, end: 20131031
  2. VINBLASTINE [Suspect]
     Indication: HODGKIN^S DISEASE
     Dosage: Q CYCLE
     Route: 042
     Dates: start: 20131017, end: 20131031
  3. DOXORUBICIN [Suspect]
     Indication: HODGKIN^S DISEASE
     Dosage: Q CYCLE
     Route: 042
     Dates: start: 20131017, end: 20131031
  4. DACARBAZINE [Suspect]
     Indication: HODGKIN^S DISEASE
     Dosage: Q CYCLE
     Route: 042
     Dates: start: 20131017, end: 20131031

REACTIONS (3)
  - Ileus [None]
  - White blood cell count decreased [None]
  - Iatrogenic injury [None]
